FAERS Safety Report 12867087 (Version 1)
Quarter: 2016Q4

REPORT INFORMATION
  Report Type: Spontaneous
  Country: US (occurrence: US)
  Receive Date: 20161020
  Receipt Date: 20161020
  Transmission Date: 20170207
  Serious: No
  Sender: FDA-Public Use
  Company Number: US-JAZZ-2016-US-014780

PATIENT
  Sex: Female

DRUGS (30)
  1. ZYRTEC [Concomitant]
     Active Substance: CETIRIZINE HYDROCHLORIDE
  2. TOPAMAX [Concomitant]
     Active Substance: TOPIRAMATE
  3. NASONEX [Concomitant]
     Active Substance: MOMETASONE FUROATE
  4. XYREM [Suspect]
     Active Substance: SODIUM OXYBATE
     Dosage: 4.5 G, BID
     Route: 048
     Dates: start: 201203
  5. RIZATRIPTAN. [Concomitant]
     Active Substance: RIZATRIPTAN
  6. TOPIRAMATE. [Concomitant]
     Active Substance: TOPIRAMATE
  7. ATIVAN [Concomitant]
     Active Substance: LORAZEPAM
  8. BACLOFEN. [Concomitant]
     Active Substance: BACLOFEN
  9. FIORICET WITH CODEINE [Concomitant]
     Active Substance: ACETAMINOPHEN\BUTALBITAL\CAFFEINE\CODEINE PHOSPHATE
  10. FLEXERIL [Concomitant]
     Active Substance: CYCLOBENZAPRINE HYDROCHLORIDE
  11. XYREM [Suspect]
     Active Substance: SODIUM OXYBATE
     Indication: NARCOLEPSY
     Dosage: 2.25 G, BID
     Route: 048
     Dates: start: 201202, end: 201202
  12. XYREM [Suspect]
     Active Substance: SODIUM OXYBATE
     Indication: CATAPLEXY
     Dosage: DOSE ADJUSTMENTS
     Route: 048
     Dates: start: 201202, end: 201203
  13. ADVAIR HFA [Concomitant]
     Active Substance: FLUTICASONE PROPIONATE\SALMETEROL XINAFOATE
  14. PROBIOTIC [Concomitant]
     Active Substance: PROBIOTICS NOS
  15. VENTOLIN HFA [Concomitant]
     Active Substance: ALBUTEROL SULFATE
  16. FUROSEMIDE. [Concomitant]
     Active Substance: FUROSEMIDE
  17. NORCO [Concomitant]
     Active Substance: ACETAMINOPHEN\HYDROCODONE BITARTRATE
  18. IMODIUM [Concomitant]
     Active Substance: LOPERAMIDE HYDROCHLORIDE
  19. MULTIVITAMINS [Concomitant]
     Active Substance: VITAMINS
  20. NUVIGIL [Concomitant]
     Active Substance: ARMODAFINIL
  21. PLAQUENIL [Concomitant]
     Active Substance: HYDROXYCHLOROQUINE SULFATE
  22. OMEPRAZOLE. [Concomitant]
     Active Substance: OMEPRAZOLE
  23. ZOFRAN [Concomitant]
     Active Substance: ONDANSETRON HYDROCHLORIDE
  24. ALLEGRA ALLERGY [Concomitant]
     Active Substance: FEXOFENADINE HYDROCHLORIDE
  25. METHYLPHENIDATE. [Concomitant]
     Active Substance: METHYLPHENIDATE
  26. TRAMADOL HCL [Concomitant]
     Active Substance: TRAMADOL HYDROCHLORIDE
  27. LIDOCAINE. [Concomitant]
     Active Substance: LIDOCAINE
  28. OMNARIS [Concomitant]
     Active Substance: CICLESONIDE
  29. TYLENOL EXTRA STRENGTH [Concomitant]
     Active Substance: ACETAMINOPHEN
  30. CLARITIN [Concomitant]
     Active Substance: LORATADINE

REACTIONS (1)
  - Sinusitis [Recovering/Resolving]
